FAERS Safety Report 18998625 (Version 2)
Quarter: 2021Q2

REPORT INFORMATION
  Report Type: Spontaneous
  Country: US (occurrence: US)
  Receive Date: 20210311
  Receipt Date: 20210506
  Transmission Date: 20210717
  Serious: No
  Sender: FDA-Public Use
  Company Number: US-ASTRAZENECA-2021A099297

PATIENT
  Sex: Female
  Weight: 49.9 kg

DRUGS (2)
  1. BREZTRI AEROSPHERE [Suspect]
     Active Substance: BUDESONIDE\FORMOTEROL\GLYCOPYRRONIUM
     Indication: ASTHMA
     Dosage: 160 MCG/ 9 MCG / 4.8 MCG 2 PUFFS BID
     Route: 055
     Dates: start: 202102
  2. BREZTRI AEROSPHERE [Suspect]
     Active Substance: BUDESONIDE\FORMOTEROL\GLYCOPYRRONIUM
     Indication: CHRONIC OBSTRUCTIVE PULMONARY DISEASE
     Dosage: 160 MCG/ 9 MCG / 4.8 MCG 2 PUFFS BID
     Route: 055
     Dates: start: 202102

REACTIONS (5)
  - Device use issue [Unknown]
  - Nervousness [Unknown]
  - Device malfunction [Unknown]
  - Intentional product misuse [Unknown]
  - Off label use [Unknown]
